FAERS Safety Report 6268318-8 (Version None)
Quarter: 2009Q3

REPORT INFORMATION
  Report Type: 
  Country: None (occurrence: None)
  Receive Date: 20090715
  Receipt Date: 20090706
  Transmission Date: 20100115
  Serious: Yes (Other)
  Sender: FDA-Public Use
  Company Number: GB-JNJFOC-20090404839

PATIENT
  Age: 82 Year
  Sex: Male
  Weight: 69 kg

DRUGS (5)
  1. REMICADE [Suspect]
     Route: 042
  2. REMICADE [Suspect]
     Indication: RHEUMATOID ARTHRITIS
     Route: 042
  3. FOLIC ACID [Concomitant]
  4. NAPROXEN [Concomitant]
  5. NEFOPAM [Concomitant]

REACTIONS (1)
  - MALIGNANT MELANOMA [None]
